FAERS Safety Report 8943429 (Version 1)
Quarter: 2012Q4

REPORT INFORMATION
  Report Type: 
  Country: IN (occurrence: IN)
  Receive Date: 20121204
  Receipt Date: 20121204
  Transmission Date: 20130627
  Serious: Yes (Other)
  Sender: FDA-Public Use
  Company Number: PHHY2012IN054663

PATIENT
  Sex: Female

DRUGS (2)
  1. GLIVEC [Suspect]
     Indication: GASTROINTESTINAL STROMAL TUMOUR
     Dosage: 400 mg
  2. GLIVEC [Suspect]
     Dosage: 600 mg

REACTIONS (2)
  - Ovarian neoplasm [Unknown]
  - Malignant neoplasm progression [Unknown]
